FAERS Safety Report 11020283 (Version 1)
Quarter: 2015Q2

REPORT INFORMATION
  Report Type: Spontaneous
  Country: ES (occurrence: ES)
  Receive Date: 20150413
  Receipt Date: 20150413
  Transmission Date: 20150821
  Serious: Yes (Other)
  Sender: FDA-Public Use
  Company Number: PHHY2015ES042876

PATIENT
  Age: 20 Year
  Sex: Male

DRUGS (2)
  1. ACENOCOUMAROL [Concomitant]
     Active Substance: ACENOCOUMAROL
     Indication: PRODUCT USED FOR UNKNOWN INDICATION
     Route: 048
  2. METHYLPREDNISOLONE. [Suspect]
     Active Substance: METHYLPREDNISOLONE
     Indication: PRODUCT USED FOR UNKNOWN INDICATION
     Dosage: 1 G, UNK
     Route: 040

REACTIONS (4)
  - Peripheral venous disease [Recovering/Resolving]
  - Headache [Recovered/Resolved]
  - Ischaemic cerebral infarction [Recovering/Resolving]
  - Cerebral venous thrombosis [Recovering/Resolving]
